FAERS Safety Report 4715565-X (Version None)
Quarter: 2005Q3

REPORT INFORMATION
  Report Type: 
  Country: None (occurrence: None)
  Receive Date: 20050713
  Receipt Date: 20050704
  Transmission Date: 20060218
  Serious: Yes (Hospitalization)
  Sender: FDA-Public Use
  Company Number: DEU-2005-0001478

PATIENT
  Age: 64 Year
  Sex: Female
  Weight: 65 kg

DRUGS (4)
  1. OXYCODONE HCL [Suspect]
     Indication: PAIN
     Dosage: 10 MG, BID, ORAL
     Route: 048
     Dates: start: 20040604, end: 20040629
  2. CAPTOPRIL [Concomitant]
  3. INSIDON (OPIPRAMOL HYDROCHLORIDE) [Concomitant]
  4. EVISTA [Concomitant]

REACTIONS (1)
  - DEPRESSION [None]
